FAERS Safety Report 20668538 (Version 3)
Quarter: 2022Q2

REPORT INFORMATION
  Report Type: Spontaneous
  Country: JP (occurrence: JP)
  Receive Date: 20220404
  Receipt Date: 20220527
  Transmission Date: 20220721
  Serious: Yes (Death, Hospitalization, Other)
  Sender: FDA-Public Use
  Company Number: JP-CHUGAI-2022011392

PATIENT
  Age: 71 Year
  Sex: Female
  Weight: 52 kg

DRUGS (1)
  1. ROZLYTREK [Suspect]
     Active Substance: ENTRECTINIB
     Indication: Non-small cell lung cancer
     Dosage: 600 MILLIGRAM, QD
     Route: 048
     Dates: start: 20220311, end: 20220318

REACTIONS (3)
  - Acute kidney injury [Not Recovered/Not Resolved]
  - Bipolar disorder [Unknown]
  - Disease progression [Fatal]

NARRATIVE: CASE EVENT DATE: 20220318
